FAERS Safety Report 13977578 (Version 7)
Quarter: 2018Q2

REPORT INFORMATION
  Report Type: Spontaneous
  Country: US (occurrence: US)
  Receive Date: 20170915
  Receipt Date: 20180524
  Transmission Date: 20180711
  Serious: Yes (Other)
  Sender: FDA-Public Use
  Company Number: US-BRISTOL-MYERS SQUIBB COMPANY-BMS-2017-081144

PATIENT
  Age: 43 Year
  Sex: Female

DRUGS (1)
  1. SPRYCEL [Suspect]
     Active Substance: DASATINIB
     Indication: CHRONIC MYELOID LEUKAEMIA
     Dosage: 80 MG, QD
     Route: 048
     Dates: start: 201707

REACTIONS (22)
  - Pelvic pain [Unknown]
  - Acne [Unknown]
  - Lymphadenopathy [Not Recovered/Not Resolved]
  - Flatulence [Unknown]
  - Fatigue [Unknown]
  - Ovarian cyst [Unknown]
  - Vitamin D decreased [Unknown]
  - Constipation [Unknown]
  - Paraesthesia [Recovering/Resolving]
  - White blood cell count decreased [Unknown]
  - Injury [Unknown]
  - Pulmonary oedema [Recovered/Resolved]
  - Pleural effusion [Unknown]
  - Prescribed underdose [Unknown]
  - Headache [Unknown]
  - Sleep disorder [Unknown]
  - Abdominal distension [Unknown]
  - Uterine haemorrhage [Recovered/Resolved]
  - Road traffic accident [Unknown]
  - Chills [Not Recovered/Not Resolved]
  - Nerve compression [Unknown]
  - Abdominal distension [Not Recovered/Not Resolved]

NARRATIVE: CASE EVENT DATE: 20170827
